FAERS Safety Report 5020560-X (Version None)
Quarter: 2006Q2

REPORT INFORMATION
  Report Type: 
  Country: None (occurrence: None)
  Receive Date: 20060602
  Receipt Date: 20060519
  Transmission Date: 20061013
  Serious: Yes (Hospitalization)
  Sender: FDA-Public Use
  Company Number: 2006BI007349

PATIENT
  Age: 59 Year
  Sex: Female
  Weight: 41.7309 kg

DRUGS (5)
  1. AVONEX [Suspect]
     Indication: MULTIPLE SCLEROSIS
     Dosage: 30 UG QW IM
     Route: 030
     Dates: start: 20010101, end: 20030101
  2. AVONEX [Suspect]
     Indication: MULTIPLE SCLEROSIS
     Dosage: 30 UG QW IM ; 30 UG QW IM
     Route: 030
     Dates: start: 20030101, end: 20060402
  3. AVONEX [Suspect]
     Indication: MULTIPLE SCLEROSIS
     Dosage: 30 UG QW IM ; 30 UG QW IM
     Route: 030
     Dates: start: 20060413
  4. DITROPAN [Concomitant]
  5. PREMARIN [Concomitant]

REACTIONS (16)
  - ANXIETY [None]
  - ARTHRALGIA [None]
  - COLONIC POLYP [None]
  - CONDITION AGGRAVATED [None]
  - DEPRESSION [None]
  - DIFFICULTY IN WALKING [None]
  - FATIGUE [None]
  - GASTRIC PH DECREASED [None]
  - GASTROENTERITIS [None]
  - INTESTINAL OBSTRUCTION [None]
  - IRRITABLE BOWEL SYNDROME [None]
  - MULTIPLE SCLEROSIS [None]
  - MUSCLE SPASMS [None]
  - OSTEOARTHRITIS [None]
  - SEASONAL ALLERGY [None]
  - WEIGHT DECREASED [None]
